FAERS Safety Report 4795833-6 (Version None)
Quarter: 2005Q4

REPORT INFORMATION
  Report Type: 
  Country: None (occurrence: None)
  Receive Date: 20051012
  Receipt Date: 20050928
  Transmission Date: 20060501
  Serious: Yes (Other)
  Sender: FDA-Public Use
  Company Number: US-JNJFOC-20051001960

PATIENT
  Sex: Male
  Weight: 90.72 kg

DRUGS (7)
  1. IBUPROFEN [Suspect]
     Indication: DRUG USE FOR UNKNOWN INDICATION
  2. GEOCILLIN [Suspect]
     Indication: PROSTATE INFECTION
     Route: 048
  3. FELDENE [Suspect]
     Indication: DRUG USE FOR UNKNOWN INDICATION
  4. CELEBREX [Suspect]
     Indication: DRUG USE FOR UNKNOWN INDICATION
  5. GENTAMICIN [Suspect]
     Indication: MENIERE'S DISEASE
  6. ANTI-INFLAMMATORIES [Suspect]
     Indication: DRUG USE FOR UNKNOWN INDICATION
  7. BEXTRA [Concomitant]

REACTIONS (2)
  - DEAFNESS [None]
  - MENIERE'S DISEASE [None]
